FAERS Safety Report 6812876-9 (Version None)
Quarter: 2010Q3

REPORT INFORMATION
  Report Type: 
  Country: None (occurrence: None)
  Receive Date: 20100701
  Receipt Date: 20100621
  Transmission Date: 20110219
  Serious: Yes (Death)
  Sender: FDA-Public Use
  Company Number: GXKR2010US06915

PATIENT
  Age: 73 Year
  Sex: Male

DRUGS (1)
  1. PREDNISONE (NGX) [Suspect]
     Indication: CHRONIC OBSTRUCTIVE PULMONARY DISEASE
     Dosage: DAILY
     Route: 048

REACTIONS (14)
  - ACUTE RESPIRATORY DISTRESS SYNDROME [None]
  - ANAEMIA [None]
  - AZOTAEMIA [None]
  - CREPITATIONS [None]
  - DYSPNOEA [None]
  - ENDOTRACHEAL INTUBATION [None]
  - EOSINOPHIL COUNT DECREASED [None]
  - HAEMOPTYSIS [None]
  - MECHANICAL VENTILATION [None]
  - PULMONARY HAEMORRHAGE [None]
  - STRONGYLOIDIASIS [None]
  - TACHYCARDIA [None]
  - TACHYPNOEA [None]
  - WHEEZING [None]
